FAERS Safety Report 7299851-8 (Version None)
Quarter: 2011Q1

REPORT INFORMATION
  Report Type: 
  Country: None (occurrence: None)
  Receive Date: 20110217
  Receipt Date: 20101216
  Transmission Date: 20110831
  Serious: No
  Sender: FDA-Public Use
  Company Number: US-BAYER-2011-009739

PATIENT
  Sex: Female
  Weight: 118 kg

DRUGS (7)
  1. CELEXA [Concomitant]
     Dosage: 40 MG, UNK
  2. DIAZEPAM [Concomitant]
     Dosage: 10 MG, UNK
  3. CARBATROL [Concomitant]
     Dosage: 600 MG, UNK
  4. ALEVE (CAPLET) [Suspect]
     Indication: ARTHRALGIA
     Dosage: DAILY DOSE 2 DF
     Route: 048
     Dates: start: 20100101
  5. LISINOPRIL [Concomitant]
     Dosage: 2 MG, UNK
  6. ADVAIR DISKUS 100/50 [Concomitant]
  7. VITAMIN D [Concomitant]

REACTIONS (1)
  - CONSTIPATION [None]
